FAERS Safety Report 21930001 (Version 1)
Quarter: 2023Q1

REPORT INFORMATION
  Report Type: Spontaneous
  Country: US (occurrence: US)
  Receive Date: 20230131
  Receipt Date: 20230131
  Transmission Date: 20230418
  Serious: No
  Sender: FDA-Public Use
  Company Number: US-GLAXOSMITHKLINE-USCH2023004142

PATIENT

DRUGS (1)
  1. ABREVA [Suspect]
     Active Substance: DOCOSANOL
     Indication: Oral herpes
     Dosage: UNK
     Dates: start: 20221225

REACTIONS (5)
  - Oral herpes [Unknown]
  - Condition aggravated [Unknown]
  - Oral mucosal scar [Unknown]
  - Drug ineffective [Unknown]
  - Expired product administered [Unknown]
